FAERS Safety Report 8419538-5 (Version None)
Quarter: 2012Q2

REPORT INFORMATION
  Report Type: 
  Country: None (occurrence: None)
  Receive Date: 20120607
  Receipt Date: 20120221
  Transmission Date: 20120825
  Serious: No
  Sender: FDA-Public Use
  Company Number: US-BRISTOL-MYERS SQUIBB COMPANY-16409732

PATIENT
  Age: 40 Year
  Sex: Male

DRUGS (2)
  1. SUSTIVA [Suspect]
     Dates: end: 20111101
  2. COMBIVIR [Suspect]
     Dates: end: 20111101

REACTIONS (1)
  - BLOOD TEST ABNORMAL [None]
